FAERS Safety Report 12606370 (Version 2)
Quarter: 2017Q4

REPORT INFORMATION
  Report Type: Spontaneous
  Country: US (occurrence: US)
  Receive Date: 20160729
  Receipt Date: 20171212
  Transmission Date: 20180320
  Serious: Yes (Hospitalization, Other)
  Sender: FDA-Public Use
  Company Number: US-009507513-1201USA02271

PATIENT
  Sex: Female
  Weight: 74.39 kg

DRUGS (5)
  1. FOSAMAX [Suspect]
     Active Substance: ALENDRONATE SODIUM
     Dosage: 70 MG, QW
     Route: 048
     Dates: start: 20090319, end: 20100310
  2. FORTEO [Suspect]
     Active Substance: TERIPARATIDE
     Indication: OSTEOPOROSIS
     Dates: start: 20051115, end: 20070125
  3. ACTONEL [Suspect]
     Active Substance: RISEDRONATE SODIUM
     Indication: OSTEOPOROSIS
     Dosage: 35 MG, QW
     Route: 048
     Dates: start: 20070125, end: 20090319
  4. FOSAMAX [Suspect]
     Active Substance: ALENDRONATE SODIUM
     Dosage: 70 MG, UNK
     Route: 048
     Dates: start: 20090323, end: 20100118
  5. FOSAMAX [Suspect]
     Active Substance: ALENDRONATE SODIUM
     Indication: OSTEOPOROSIS
     Dosage: 70 MG, QW
     Route: 048
     Dates: start: 20011011, end: 20050417

REACTIONS (58)
  - Barrett^s oesophagus [Not Recovered/Not Resolved]
  - Urinary tract infection [Not Recovered/Not Resolved]
  - Gait disturbance [Unknown]
  - Vertigo [Recovered/Resolved]
  - Gastrooesophageal reflux disease [Not Recovered/Not Resolved]
  - Spider naevus [Unknown]
  - Basal cell carcinoma [Unknown]
  - Appendix disorder [Unknown]
  - Abdominal discomfort [Unknown]
  - Breast disorder [Unknown]
  - Peroneal nerve palsy [Unknown]
  - Bursitis [Not Recovered/Not Resolved]
  - Terminal insomnia [Not Recovered/Not Resolved]
  - Nasal polyps [Unknown]
  - Osteoarthritis [Not Recovered/Not Resolved]
  - Finger deformity [Unknown]
  - Meniscus injury [Unknown]
  - Inguinal hernia [Unknown]
  - Hiatus hernia [Unknown]
  - Bladder disorder [Unknown]
  - Diverticulum [Unknown]
  - Cystocele [Unknown]
  - Kidney infection [Unknown]
  - Chronic kidney disease [Unknown]
  - Anaemia [Unknown]
  - Pyelonephritis [Unknown]
  - Conversion disorder [Unknown]
  - Pubis fracture [Unknown]
  - Hyperlipidaemia [Unknown]
  - Diverticulitis [Recovered/Resolved]
  - Squamous cell carcinoma [Unknown]
  - Peripheral swelling [Unknown]
  - Varicose vein [Unknown]
  - Arthritis [Unknown]
  - Haemorrhoids [Unknown]
  - Hypercholesterolaemia [Unknown]
  - Hip fracture [Recovered/Resolved]
  - Urinary incontinence [Not Recovered/Not Resolved]
  - Anosmia [Unknown]
  - Peripheral venous disease [Unknown]
  - Muscle atrophy [Unknown]
  - Constipation [Not Recovered/Not Resolved]
  - Arthritis [Unknown]
  - Chronic sinusitis [Not Recovered/Not Resolved]
  - Cardiac murmur [Unknown]
  - Femur fracture [Unknown]
  - Hypothyroidism [Unknown]
  - Hypertension [Not Recovered/Not Resolved]
  - Carotid artery stenosis [Unknown]
  - Femur fracture [Recovered/Resolved]
  - Rhinitis allergic [Unknown]
  - Carotid bruit [Unknown]
  - Diverticulum [Not Recovered/Not Resolved]
  - Spinal column stenosis [Not Recovered/Not Resolved]
  - Spondylolisthesis [Unknown]
  - Blindness [Recovered/Resolved]
  - Raynaud^s phenomenon [Unknown]
  - Fall [Unknown]

NARRATIVE: CASE EVENT DATE: 200110
